FAERS Safety Report 7263851-4 (Version None)
Quarter: 2011Q1

REPORT INFORMATION
  Report Type: 
  Country: None (occurrence: None)
  Receive Date: 20110130
  Receipt Date: 20101206
  Transmission Date: 20110831
  Serious: No
  Sender: FDA-Public Use
  Company Number: US-ABBOTT-10P-163-0689956-00

PATIENT
  Age: 56 Year
  Sex: Female

DRUGS (11)
  1. IMURAN [Concomitant]
     Indication: CROHN'S DISEASE
     Dosage: 2.5 PILLS DAILY
  2. SIMVASTATIN [Concomitant]
     Indication: BLOOD CHOLESTEROL INCREASED
  3. COLACE [Concomitant]
     Indication: CONSTIPATION
     Dosage: AS NEEDED
  4. VITAMIN D [Concomitant]
     Indication: PRODUCT USED FOR UNKNOWN INDICATION
  5. METFORMIN [Concomitant]
     Indication: DIABETES MELLITUS
  6. TRIAMTERENE AND HYDROCHLOROTHIAZIDE [Concomitant]
     Indication: HYPERTENSION
  7. HUMIRA [Suspect]
     Indication: CROHN'S DISEASE
     Dosage: 80 MG LOADING DOSE DAY 1; 80 MG LOADING DOSE DAY 2
     Dates: start: 20101119
  8. LEVOTHYROXINE SODIUM [Concomitant]
     Indication: HYPOTHYROIDISM
  9. CITALOPRAM HYDROBROMIDE [Concomitant]
     Indication: DEPRESSION
  10. ENTOCORT EC [Concomitant]
     Indication: CROHN'S DISEASE
  11. LISINOPRIL [Concomitant]
     Indication: HYPERTENSION

REACTIONS (5)
  - INJECTION SITE ERYTHEMA [None]
  - INJECTION SITE PAPULE [None]
  - INJECTION SITE HAEMATOMA [None]
  - ABDOMINAL DISTENSION [None]
  - INJECTION SITE PRURITUS [None]
